FAERS Safety Report 24525375 (Version 1)
Quarter: 2024Q4

REPORT INFORMATION
  Report Type: Spontaneous
  Country: US (occurrence: US)
  Receive Date: 20241019
  Receipt Date: 20241019
  Transmission Date: 20250115
  Serious: No
  Sender: LGM PHARMA SOLUTIONS, LLC
  Company Number: US-LGM Pharma Solutions, LLC-2163368

PATIENT
  Age: 43 Year
  Sex: Male

DRUGS (1)
  1. CHENODAL [Suspect]
     Active Substance: CHENODIOL
     Indication: Neuronal ceroid lipofuscinosis

REACTIONS (4)
  - Gait disturbance [Unknown]
  - Toe walking [Unknown]
  - Frequent bowel movements [Unknown]
  - Abdominal distension [Unknown]
